FAERS Safety Report 18967335 (Version 2)
Quarter: 2021Q2

REPORT INFORMATION
  Report Type: Spontaneous
  Country: GB (occurrence: GB)
  Receive Date: 20210304
  Receipt Date: 20210517
  Transmission Date: 20210717
  Serious: Yes (Hospitalization, Other)
  Sender: FDA-Public Use
  Company Number: GB-NOVOPROD-790453

PATIENT
  Age: 75 Year
  Sex: Male
  Weight: 111.8 kg

DRUGS (23)
  1. NOVORAPID [Suspect]
     Active Substance: INSULIN ASPART
     Dosage: UNK
     Route: 058
     Dates: start: 20170416, end: 20191114
  2. EPOETIN BETA [Concomitant]
     Active Substance: ERYTHROPOIETIN
     Dosage: 10,000UNITS/0.6ML SOLUTION FOR INJECTION PRE?FILLED SYRINGES 10,000
     Route: 065
     Dates: start: 20190923
  3. FUROSEMIDE. [Concomitant]
     Active Substance: FUROSEMIDE
     Dosage: 40MG
     Route: 065
  4. APIXABAN [Concomitant]
     Active Substance: APIXABAN
     Indication: ATRIAL FIBRILLATION
     Dosage: 5 MG, BID
     Route: 065
     Dates: start: 20170525, end: 20201109
  5. LONGTEC [Concomitant]
     Active Substance: OXYCODONE HYDROCHLORIDE
     Dosage: 5MG MODIFIED?RELEASE TABLETS
     Route: 065
  6. DERMOL 500 [Concomitant]
     Dosage: UNK
     Route: 065
  7. BISOPROLOL [Concomitant]
     Active Substance: BISOPROLOL
     Dosage: 2.5 MG
     Route: 065
  8. DULOXETINE. [Concomitant]
     Active Substance: DULOXETINE
     Dosage: 60 MG
     Route: 065
  9. FERROUS SULFATE. [Concomitant]
     Active Substance: FERROUS SULFATE
     Dosage: 200MG TABLETS
     Route: 065
  10. EZETIMIBE. [Concomitant]
     Active Substance: EZETIMIBE
     Dosage: UNK
     Route: 065
     Dates: start: 202005
  11. PARACETAMOL [Concomitant]
     Active Substance: ACETAMINOPHEN
     Dosage: 500 MG
     Route: 065
  12. NOVORAPID [Suspect]
     Active Substance: INSULIN ASPART
     Indication: TYPE 2 DIABETES MELLITUS
     Dosage: 3 X DAILY =36 UNITS
     Route: 058
     Dates: start: 1999
  13. BOSUTINIB [Concomitant]
     Active Substance: BOSUTINIB
     Dosage: 100MG TABLETS
     Route: 065
     Dates: start: 20181122
  14. OXYCODONE [Concomitant]
     Active Substance: OXYCODONE
     Dosage: 5MG/5ML ORAL SOLUTION SUGAR FREE
     Route: 065
  15. LANTUS [Concomitant]
     Active Substance: INSULIN GLARGINE
     Dosage: LO0UNITS/ML SOLUTION FOR INJECTION 3ML PRE?FILLED SOLOSTAR PENS
     Route: 065
  16. EVACAL D3 [Concomitant]
     Dosage: 1500MG/400UNIT CHEWABLE TABLETS
     Route: 065
  17. ATORVASTATIN [Concomitant]
     Active Substance: ATORVASTATIN
     Dosage: 80MG TABLETS
     Route: 065
  18. NOVORAPID [Suspect]
     Active Substance: INSULIN ASPART
     Dosage: UNK
     Route: 058
     Dates: start: 20200505
  19. CLENIL MODULITE [Concomitant]
     Active Substance: BECLOMETHASONE DIPROPIONATE
     Dosage: L00MICROGRAMS/DOSE
     Route: 065
  20. SALBUTAMOL [Concomitant]
     Active Substance: ALBUTEROL
     Dosage: L00MICROGRAMS/DOSE INHALER CFC FREE
     Route: 055
  21. FINASTERIDE. [Concomitant]
     Active Substance: FINASTERIDE
     Dosage: 5MG TABLETS
     Route: 065
  22. LAXIDO ORANGE [Concomitant]
     Dosage: ORAL POWDER SACHETS SUGAR FREE
     Route: 048
  23. CLOPIDOGREL [Concomitant]
     Active Substance: CLOPIDOGREL BISULFATE
     Indication: CARDIOVASCULAR DISORDER
     Dosage: UNK
     Route: 065
     Dates: end: 20201109

REACTIONS (2)
  - Intraventricular haemorrhage [Not Recovered/Not Resolved]
  - Cerebrovascular accident [Not Recovered/Not Resolved]

NARRATIVE: CASE EVENT DATE: 202010
